FAERS Safety Report 9146336 (Version 1)
Quarter: 2013Q1

REPORT INFORMATION
  Report Type: Spontaneous
  Country: IT (occurrence: IT)
  Receive Date: 20130307
  Receipt Date: 20130307
  Transmission Date: 20140127
  Serious: Yes (Hospitalization)
  Sender: FDA-Public Use
  Company Number: PHHY2013IT021979

PATIENT
  Age: 71 Year
  Sex: Male

DRUGS (5)
  1. ETUMINE [Suspect]
     Dosage: 50 DRP, DAILY
     Route: 048
     Dates: start: 20120129, end: 20120129
  2. METFORMIN [Suspect]
     Dosage: 7650 MG, UNK
     Route: 048
     Dates: start: 20120128, end: 20120129
  3. DIAMICRON [Concomitant]
  4. CARDIOASPIRIN [Concomitant]
     Dosage: 100 MG, UNK
  5. SINVACOR [Concomitant]

REACTIONS (3)
  - Tachycardia [Recovered/Resolved]
  - Bradykinesia [Recovered/Resolved]
  - Bradyphrenia [Recovered/Resolved]
